FAERS Safety Report 5322364-7 (Version None)
Quarter: 2007Q2

REPORT INFORMATION
  Report Type: 
  Country: None (occurrence: None)
  Receive Date: 20070511
  Receipt Date: 20070504
  Transmission Date: 20071010
  Serious: Yes (Other)
  Sender: FDA-Public Use
  Company Number: BR-ASTRAZENECA-2007UW10907

PATIENT
  Age: 50 Year
  Sex: Female
  Weight: 67.3 kg

DRUGS (2)
  1. ATENOLOL [Suspect]
     Indication: HYPERTENSION
     Dosage: }5 YEARS
     Route: 048
  2. VASOPRIL [Concomitant]
     Indication: HYPERTENSION
     Dosage: }5 YEARS
     Route: 048

REACTIONS (6)
  - ABDOMINAL DISTENSION [None]
  - ANOREXIA [None]
  - ASTHENIA [None]
  - BLOOD AMYLASE INCREASED [None]
  - PSYCHIATRIC SYMPTOM [None]
  - WEIGHT DECREASED [None]
